FAERS Safety Report 7642114-9 (Version None)
Quarter: 2011Q3

REPORT INFORMATION
  Report Type: 
  Country: None (occurrence: None)
  Receive Date: 20110728
  Receipt Date: 20110714
  Transmission Date: 20111222
  Serious: Yes (Hospitalization)
  Sender: FDA-Public Use
  Company Number: ES-ELI_LILLY_AND_COMPANY-ES201107003992

PATIENT
  Sex: Female
  Weight: 66 kg

DRUGS (3)
  1. FERROUS SULFATE TAB [Concomitant]
     Indication: IRON DEFICIENCY ANAEMIA
     Dosage: 1 DF, QD
  2. IBUPROFEN [Concomitant]
     Indication: PAIN
     Dosage: 1 DF, QD
     Route: 048
  3. FORTEO [Suspect]
     Indication: OSTEOPOROSIS
     Dosage: 20 UG, QD
     Route: 058
     Dates: start: 20100401

REACTIONS (2)
  - DEVICE BREAKAGE [None]
  - DEVICE RELATED INFECTION [None]
